FAERS Safety Report 6762488-0 (Version None)
Quarter: 2010Q2

REPORT INFORMATION
  Report Type: 
  Country: None (occurrence: None)
  Receive Date: 20100524
  Receipt Date: 20100512
  Transmission Date: 20101027
  Serious: Yes (Death, Life-Threatening, Hospitalization)
  Sender: FDA-Public Use
  Company Number: US-144946

PATIENT
  Age: 62 Year
  Sex: Female
  Weight: 82.1011 kg

DRUGS (1)
  1. WINRHO SDF LIQUID [Suspect]
     Indication: IDIOPATHIC THROMBOCYTOPENIC PURPURA
     Dosage: (6000 UG INTRAVENOUS (NOT OTHERWISE SPECIFIED))
     Route: 042
     Dates: start: 20090707, end: 20090707

REACTIONS (26)
  - AKINESIA [None]
  - ASCITES [None]
  - BACK PAIN [None]
  - BLOOD PRESSURE INCREASED [None]
  - CHILLS [None]
  - COMA [None]
  - CONTUSION [None]
  - DIVERTICULUM [None]
  - FATIGUE [None]
  - GENERALISED OEDEMA [None]
  - HEPATIC CIRRHOSIS [None]
  - HEPATIC ENCEPHALOPATHY [None]
  - HEPATIC FAILURE [None]
  - IMMEDIATE POST-INJECTION REACTION [None]
  - JAUNDICE [None]
  - OVERDOSE [None]
  - PAIN [None]
  - PORTAL VEIN THROMBOSIS [None]
  - PYREXIA [None]
  - RENAL FAILURE CHRONIC [None]
  - SCREAMING [None]
  - SKIN LACERATION [None]
  - SKIN LESION [None]
  - SPLENOMEGALY [None]
  - SPLENORENAL SHUNT [None]
  - VARICES OESOPHAGEAL [None]
